FAERS Safety Report 7631076-6 (Version None)
Quarter: 2011Q3

REPORT INFORMATION
  Report Type: 
  Country: None (occurrence: None)
  Receive Date: 20110725
  Receipt Date: 20110719
  Transmission Date: 20111222
  Serious: Yes (Death, Hospitalization)
  Sender: FDA-Public Use
  Company Number: US-CELGENEUS-163-21880-11072207

PATIENT
  Sex: Male

DRUGS (2)
  1. REVLIMID [Suspect]
     Indication: MULTIPLE MYELOMA
     Dosage: 10 MILLIGRAM
     Route: 048
     Dates: start: 20080201, end: 20091228
  2. REVLIMID [Suspect]
     Dosage: 10 MILLIGRAM
     Route: 048
     Dates: start: 20110504

REACTIONS (6)
  - ABDOMINAL PAIN [None]
  - NAUSEA [None]
  - DECREASED APPETITE [None]
  - HYPOTENSION [None]
  - DEATH [None]
  - PNEUMONIA [None]
